FAERS Safety Report 15220812 (Version 3)
Quarter: 2018Q3

REPORT INFORMATION
  Report Type: Spontaneous
  Country: AU (occurrence: AU)
  Receive Date: 20180731
  Receipt Date: 20180928
  Transmission Date: 20181010
  Serious: Yes (Hospitalization)
  Sender: FDA-Public Use
  Company Number: AU-GILEAD-2018-0352543

PATIENT
  Age: 61 Year
  Sex: Female

DRUGS (2)
  1. BACTRIM [Suspect]
     Active Substance: SULFAMETHOXAZOLE\TRIMETHOPRIM
     Indication: PRODUCT USED FOR UNKNOWN INDICATION
     Dosage: UNK UNK, QD
     Route: 048
     Dates: end: 201807
  2. AMBRISENTAN [Suspect]
     Active Substance: AMBRISENTAN
     Indication: PRODUCT USED FOR UNKNOWN INDICATION
     Dosage: 10 MG, UNK
     Route: 048
     Dates: start: 201806, end: 201807

REACTIONS (5)
  - Generalised erythema [Unknown]
  - Skin exfoliation [Unknown]
  - Mucosal exfoliation [Unknown]
  - Skin reaction [Recovered/Resolved]
  - Mucosal hyperaemia [Unknown]

NARRATIVE: CASE EVENT DATE: 20180701
